FAERS Safety Report 14553859 (Version 2)
Quarter: 2018Q2

REPORT INFORMATION
  Report Type: Report from Study
  Country: CA (occurrence: CA)
  Receive Date: 20180220
  Receipt Date: 20180503
  Transmission Date: 20180711
  Serious: Yes (Hospitalization, Other)
  Sender: FDA-Public Use
  Company Number: CA-BAYER-2018-020866

PATIENT
  Age: 82 Year
  Sex: Female

DRUGS (3)
  1. ADEMPAS [Suspect]
     Active Substance: RIOCIGUAT
     Indication: PULMONARY HYPERTENSION
     Dosage: UNK
     Route: 048
     Dates: start: 20180424
  2. PANTOLOC [Concomitant]
     Active Substance: PANTOPRAZOLE SODIUM
     Dosage: UNK
     Dates: end: 20180207
  3. ADEMPAS [Suspect]
     Active Substance: RIOCIGUAT
     Indication: PULMONARY HYPERTENSION
     Dosage: 0.5 MG, TID
     Route: 048
     Dates: start: 20171127, end: 20180216

REACTIONS (19)
  - Sleep talking [None]
  - Poor quality sleep [None]
  - Renal failure [Unknown]
  - Blood pressure decreased [None]
  - Blood pressure diastolic decreased [None]
  - Gait disturbance [Unknown]
  - Gout [Unknown]
  - Sluggishness [Recovered/Resolved]
  - Pneumonia [None]
  - Dehydration [Unknown]
  - Blood pressure diastolic decreased [None]
  - Nausea [Not Recovered/Not Resolved]
  - Somnolence [Unknown]
  - Blood pressure abnormal [Recovered/Resolved]
  - Breath sounds abnormal [None]
  - Fatigue [Recovered/Resolved]
  - Asthenia [Unknown]
  - Confusional state [Recovered/Resolved]
  - Hospitalisation [None]

NARRATIVE: CASE EVENT DATE: 201801
